FAERS Safety Report 9531040 (Version 1)
Quarter: 2013Q3

REPORT INFORMATION
  Report Type: Report from Study
  Country: CA (occurrence: CA)
  Receive Date: 20130918
  Receipt Date: 20130918
  Transmission Date: 20140515
  Serious: Yes (Hospitalization, Other)
  Sender: FDA-Public Use
  Company Number: CA-JNJFOC-20130906928

PATIENT
  Age: 32 Year
  Sex: Male

DRUGS (5)
  1. REMICADE [Suspect]
     Indication: CROHN^S DISEASE
     Dosage: 12TH INFUSION
     Route: 042
     Dates: start: 20130720
  2. REMICADE [Suspect]
     Indication: CROHN^S DISEASE
     Route: 042
     Dates: start: 20111116
  3. TYLENOL [Concomitant]
     Dosage: 3 AS NECESSARY
     Route: 065
  4. MORPHINE [Concomitant]
     Dosage: AS NECESSARY
     Route: 065
  5. STEROIDS NOS [Concomitant]
     Route: 061

REACTIONS (2)
  - Fistula [Not Recovered/Not Resolved]
  - Local swelling [Not Recovered/Not Resolved]
